FAERS Safety Report 4354952-9 (Version None)
Quarter: 2004Q2

REPORT INFORMATION
  Report Type: 
  Country: None (occurrence: None)
  Receive Date: 20040510
  Receipt Date: 20040415
  Transmission Date: 20050107
  Serious: Yes (Other)
  Sender: FDA-Public Use
  Company Number: US-BRISTOL-MYERS SQUIBB COMPANY-12577672

PATIENT
  Age: 13 Year
  Sex: Female

DRUGS (4)
  1. IFOSFAMIDE [Suspect]
     Indication: BONE SARCOMA
     Dosage: 9 G/M2
  2. METHOTREXATE [Concomitant]
  3. DOXORUBICIN HCL [Concomitant]
  4. CISPLATIN [Concomitant]

REACTIONS (2)
  - AMENORRHOEA [None]
  - PREMATURE MENOPAUSE [None]
